FAERS Safety Report 15439522 (Version 1)
Quarter: 2018Q3

REPORT INFORMATION
  Report Type: Other
  Country: IT (occurrence: IT)
  Receive Date: 20180928
  Receipt Date: 20180928
  Transmission Date: 20181010
  Serious: Yes (Hospitalization, Other)
  Sender: FDA-Public Use
  Company Number: IT-MACLEODS PHARMACEUTICALS US LTD-MAC2018016876

PATIENT

DRUGS (5)
  1. IRBESARTAN. [Suspect]
     Active Substance: IRBESARTAN
     Indication: DRUG ADMINISTRATION ERROR
     Dosage: 300 MILLIGRAM
     Route: 048
     Dates: start: 20180901, end: 20180901
  2. DILZENE [Suspect]
     Active Substance: DILTIAZEM HYDROCHLORIDE
     Indication: DRUG ADMINISTRATION ERROR
     Dosage: MODIFIED RELEASE TABLETS, TOTAL
     Route: 048
     Dates: start: 20180901, end: 20180901
  3. BISOPROLOL FUMARATE. [Suspect]
     Active Substance: BISOPROLOL FUMARATE
     Indication: DRUG ADMINISTRATION ERROR
     Dosage: 5 MILLIGRAM,TOTAL
     Route: 048
     Dates: start: 20180901, end: 20180901
  4. FUROSEMIDE. [Suspect]
     Active Substance: FUROSEMIDE
     Indication: DRUG ADMINISTRATION ERROR
     Dosage: 75 MILLIGRAM,TOTAL
     Route: 048
     Dates: start: 20180901, end: 20180901
  5. EDOXABAN [Suspect]
     Active Substance: EDOXABAN TOSYLATE
     Indication: DRUG ADMINISTRATION ERROR
     Dosage: 1 DOSAGE FORM,TOTAL
     Route: 048
     Dates: start: 20180901, end: 20180901

REACTIONS (2)
  - Bradycardia [Recovering/Resolving]
  - Medication error [Recovering/Resolving]

NARRATIVE: CASE EVENT DATE: 20180901
